FAERS Safety Report 11794549 (Version 1)
Quarter: 2015Q4

REPORT INFORMATION
  Report Type: Spontaneous
  Country: DE (occurrence: DE)
  Receive Date: 20151202
  Receipt Date: 20151202
  Transmission Date: 20160305
  Serious: Yes (Hospitalization)
  Sender: FDA-Public Use
  Company Number: DE-TEVA-612598GER

PATIENT
  Sex: Male

DRUGS (13)
  1. MIRTAZAPIN [Suspect]
     Active Substance: MIRTAZAPINE
     Route: 048
     Dates: start: 20150414, end: 20150420
  2. VALSARTAN. [Suspect]
     Active Substance: VALSARTAN
     Route: 048
  3. METFORMIN [Concomitant]
     Active Substance: METFORMIN HYDROCHLORIDE
     Route: 048
  4. SIMVASTATIN. [Concomitant]
     Active Substance: SIMVASTATIN
     Route: 048
  5. MIRTAZAPIN [Suspect]
     Active Substance: MIRTAZAPINE
     Route: 048
     Dates: start: 20150401, end: 20150415
  6. MAGNESIUM [Concomitant]
     Active Substance: MAGNESIUM
     Route: 048
  7. VENLAFAXIN [Suspect]
     Active Substance: VENLAFAXINE HYDROCHLORIDE
     Route: 048
     Dates: start: 20150423
  8. MIRTAZAPIN [Suspect]
     Active Substance: MIRTAZAPINE
     Route: 048
     Dates: start: 20141201, end: 20150331
  9. VENLAFAXIN [Suspect]
     Active Substance: VENLAFAXINE HYDROCHLORIDE
     Indication: DEPRESSION
     Route: 048
     Dates: start: 20140331, end: 20150422
  10. BISOPROLOL [Concomitant]
     Active Substance: BISOPROLOL
     Route: 048
     Dates: start: 20150408
  11. METOPROLOL [Concomitant]
     Active Substance: METOPROLOL
     Route: 048
     Dates: end: 20150407
  12. PANTOPRAZOL [Suspect]
     Active Substance: PANTOPRAZOLE SODIUM
     Route: 048
  13. ACETYLSALICYLSAEURE [Concomitant]
     Active Substance: ASPIRIN
     Route: 048

REACTIONS (1)
  - Hyponatraemia [Recovered/Resolved]

NARRATIVE: CASE EVENT DATE: 20150401
